FAERS Safety Report 17727853 (Version 4)
Quarter: 2020Q2

REPORT INFORMATION
  Report Type: Spontaneous
  Country: US (occurrence: US)
  Receive Date: 20200430
  Receipt Date: 20200603
  Transmission Date: 20200714
  Serious: No
  Sender: FDA-Public Use
  Company Number: US-PFIZER INC-2020171393

PATIENT
  Age: 54 Year
  Sex: Female
  Weight: 94 kg

DRUGS (2)
  1. METHOTREXATE SODIUM. [Suspect]
     Active Substance: METHOTREXATE SODIUM
     Indication: RHEUMATOID ARTHRITIS
     Dosage: 1 ML,WEEKLY (DOSE IS 25 MG/M,1 ML INJECTED ONCE A WEEK, 50MG/2ML VIAL)
     Dates: start: 2012
  2. METHOTREXATE SODIUM. [Suspect]
     Active Substance: METHOTREXATE SODIUM
     Indication: OSTEOARTHRITIS

REACTIONS (2)
  - Drug ineffective [Unknown]
  - Feeling abnormal [Unknown]
